FAERS Safety Report 21209122 (Version 1)
Quarter: 2022Q3

REPORT INFORMATION
  Report Type: Spontaneous
  Country: None (occurrence: A1)
  Receive Date: 20220812
  Receipt Date: 20220812
  Transmission Date: 20221027
  Serious: No
  Sender: FDA-Public Use
  Company Number: A1-Armstrong Pharmaceuticals, Inc.-2131853

PATIENT
  Age: 23 Year
  Sex: Female
  Weight: 93.636 kg

DRUGS (1)
  1. PRIMATENE MIST [Suspect]
     Active Substance: EPINEPHRINE
     Indication: Asthma
     Route: 055

REACTIONS (12)
  - Dizziness [Unknown]
  - Vertigo [Unknown]
  - Disturbance in attention [Unknown]
  - Dysphonia [Unknown]
  - Hypoaesthesia [Unknown]
  - Palpitations [Unknown]
  - Gait inability [Unknown]
  - Tremor [Unknown]
  - Dyspnoea [Unknown]
  - Cough [Unknown]
  - Anxiety [Unknown]
  - Chest pain [Unknown]

NARRATIVE: CASE EVENT DATE: 20220324
